APPROVED DRUG PRODUCT: CHILDREN'S ADVIL-FLAVORED
Active Ingredient: IBUPROFEN
Strength: 100MG/5ML
Dosage Form/Route: SUSPENSION;ORAL
Application: N020589 | Product #002
Applicant: HALEON US HOLDINGS LLC
Approved: Nov 7, 1997 | RLD: No | RS: No | Type: OTC